FAERS Safety Report 5477001-8 (Version None)
Quarter: 2007Q4

REPORT INFORMATION
  Report Type: 
  Country: None (occurrence: None)
  Receive Date: 20071003
  Receipt Date: 20071003
  Transmission Date: 20080405
  Serious: No
  Sender: FDA-Public Use
  Company Number: None

PATIENT
  Age: 57 Year
  Sex: Female
  Weight: 74.8435 kg

DRUGS (1)
  1. TYLENOLEXTRA STRENGTH  500 MG [Suspect]
     Indication: ARTHRITIS
     Dosage: 2    4TO 6 HRS
     Dates: start: 20070929, end: 20071001

REACTIONS (3)
  - FEELING ABNORMAL [None]
  - PHARMACEUTICAL PRODUCT COMPLAINT [None]
  - SOMNOLENCE [None]
